FAERS Safety Report 7786328-6 (Version None)
Quarter: 2011Q3

REPORT INFORMATION
  Report Type: 
  Country: None (occurrence: None)
  Receive Date: 20110929
  Receipt Date: 20110923
  Transmission Date: 20111222
  Serious: Yes (Other)
  Sender: FDA-Public Use
  Company Number: PHHY2011US42736

PATIENT
  Sex: Female
  Weight: 68.027 kg

DRUGS (7)
  1. GILENYA [Suspect]
     Indication: RELAPSING-REMITTING MULTIPLE SCLEROSIS
     Dosage: 0.5 MG, DAILY
     Route: 048
     Dates: start: 20110418, end: 20110518
  2. BACLOFEN [Concomitant]
     Indication: MUSCLE SPASMS
     Dosage: 40 MG, QID
     Route: 048
  3. PREMARIN [Concomitant]
     Indication: HORMONE REPLACEMENT THERAPY
     Dosage: 0.625 MG, QD
     Route: 048
  4. DETROL [Concomitant]
     Indication: BLADDER DISORDER
     Dosage: 4 MG, QID
     Route: 048
  5. TIZANIDINE HCL [Concomitant]
     Indication: MUSCLE SPASMS
     Dosage: 1.5 MG, QHS
     Route: 048
  6. CLONAZEPAM [Concomitant]
     Indication: INSOMNIA
     Dosage: 1 MG, QHS
     Route: 048
  7. FLUOXETINE [Concomitant]
     Indication: DEPRESSION
     Dosage: 10 MG, QD
     Route: 048

REACTIONS (4)
  - BLOOD PRESSURE DECREASED [None]
  - SYNCOPE [None]
  - VENTRICULAR EXTRASYSTOLES [None]
  - DIZZINESS [None]
